FAERS Safety Report 8545710-X (Version None)
Quarter: 2012Q3

REPORT INFORMATION
  Report Type: 
  Country: None (occurrence: None)
  Receive Date: 20120727
  Receipt Date: 20120723
  Transmission Date: 20120928
  Serious: Yes (Life-Threatening)
  Sender: FDA-Public Use
  Company Number: JP-PFIZER INC-2012175167

PATIENT
  Age: 78 Year

DRUGS (7)
  1. POLYFUL [Concomitant]
     Dosage: UNK
  2. VITAMIN B12 [Suspect]
     Indication: NEUROPATHY PERIPHERAL
     Dosage: UNK
     Route: 048
  3. GASCON [Suspect]
     Indication: GASTRITIS
     Dosage: UNK
     Route: 048
  4. LYRICA [Suspect]
     Indication: NEURALGIA
     Dosage: 150 MG, 1X/DAY
     Route: 048
     Dates: start: 20120714, end: 20120719
  5. LIPITOR [Suspect]
     Indication: HYPERLIPIDAEMIA
     Dosage: UNK
     Route: 048
  6. EXFORGE [Suspect]
     Indication: HYPERTENSION
     Dosage: UNK
     Route: 048
  7. MERISLON [Suspect]
     Indication: MENIERE'S DISEASE
     Dosage: UNK
     Route: 048

REACTIONS (2)
  - URINARY INCONTINENCE [None]
  - CARDIAC ARREST [None]
